FAERS Safety Report 4343848-4 (Version None)
Quarter: 2004Q2

REPORT INFORMATION
  Report Type: 
  Country: None (occurrence: None)
  Receive Date: 20040419
  Receipt Date: 20040405
  Transmission Date: 20050107
  Serious: Yes (Other)
  Sender: FDA-Public Use
  Company Number: US-JNJFOC-20040400760

PATIENT
  Age: 75 Year
  Sex: Female
  Weight: 72.5755 kg

DRUGS (11)
  1. INFLIXIMAB (INFLIXIMAB, RECOMBINANT) LYOPHILIZED POWDER [Suspect]
     Indication: RHEUMATOID ARTHRITIS
     Dosage: INTRAVENOUS
     Route: 042
     Dates: start: 20010228
  2. METHOTREXATE [Concomitant]
  3. PREMARIN [Concomitant]
  4. FOLIC ACID [Concomitant]
  5. B-12 (CYANOCOBALAMIN) [Concomitant]
  6. CALCIUM (CALCIUM) [Concomitant]
  7. VITAMIN E [Concomitant]
  8. L-LYSINE (LYSINE) [Concomitant]
  9. MULTIVITAMIN (MULTIVITAMINS) [Concomitant]
  10. VITAMIN C (ASCORBIC ACID) [Concomitant]
  11. VITAMIN C (ASCORBIC ACID) [Concomitant]

REACTIONS (1)
  - BASAL CELL CARCINOMA [None]
